FAERS Safety Report 10475143 (Version 1)
Quarter: 2014Q3

REPORT INFORMATION
  Report Type: Spontaneous
  Country: US (occurrence: None)
  Receive Date: 20140924
  Receipt Date: 20140924
  Transmission Date: 20150326
  Serious: Yes (Hospitalization)
  Sender: FDA-Public Use
  Company Number: None

PATIENT
  Age: 27 Year
  Sex: Female
  Weight: 59.4 kg

DRUGS (3)
  1. CEFAZOLIN [Suspect]
     Active Substance: CEFAZOLIN
     Indication: POSTOPERATIVE CARE
     Dosage: RECENT 2 GM ONCE IV
     Route: 042
  2. METFROMIN [Concomitant]
  3. PROPOFOL. [Suspect]
     Active Substance: PROPOFOL
     Indication: SEDATION
     Dosage: RECENT 180 MG ONCE IV
     Route: 042

REACTIONS (1)
  - Hypotension [None]

NARRATIVE: CASE EVENT DATE: 20140414
